FAERS Safety Report 4696198-0 (Version None)
Quarter: 2005Q2

REPORT INFORMATION
  Report Type: 
  Country: None (occurrence: None)
  Receive Date: 20050620
  Receipt Date: 20050603
  Transmission Date: 20051028
  Serious: Yes (Hospitalization)
  Sender: FDA-Public Use
  Company Number: S02-341-434

PATIENT
  Age: 61 Year
  Sex: Male
  Weight: 72 kg

DRUGS (2)
  1. VELCADE [Suspect]
     Indication: MULTIPLE MYELOMA
     Dosage: 2.47 MG BIW, IV BOLUS
     Route: 040
     Dates: start: 20021008, end: 20021210
  2. DEXAMETHASONE [Concomitant]

REACTIONS (4)
  - DISEASE PROGRESSION [None]
  - HAEMATURIA [None]
  - HERPES ZOSTER [None]
  - PANCYTOPENIA [None]
